FAERS Safety Report 15076896 (Version 4)
Quarter: 2019Q3

REPORT INFORMATION
  Report Type: Spontaneous
  Country: JP (occurrence: JP)
  Receive Date: 20180627
  Receipt Date: 20190808
  Transmission Date: 20191004
  Serious: Yes (Hospitalization)
  Sender: FDA-Public Use
  Company Number: PHJP2018JP013056

PATIENT
  Age: 73 Year
  Sex: Female

DRUGS (1)
  1. TEGRETOL [Suspect]
     Active Substance: CARBAMAZEPINE
     Indication: PRODUCT USED FOR UNKNOWN INDICATION
     Dosage: 21000 MG, UNK
     Route: 048

REACTIONS (13)
  - Traumatic haemothorax [Unknown]
  - Pelvic fracture [Unknown]
  - Overdose [Unknown]
  - Suicide attempt [Unknown]
  - Aortic dissection [Unknown]
  - Rib fracture [Unknown]
  - Toxicity to various agents [Unknown]
  - Depressed level of consciousness [Recovering/Resolving]
  - Splenic injury [Unknown]
  - Lumbar vertebral fracture [Unknown]
  - Thoracic vertebral fracture [Unknown]
  - Blood pressure decreased [Recovering/Resolving]
  - Multiple fractures [Unknown]
